FAERS Safety Report 7571598-X (Version None)
Quarter: 2011Q2

REPORT INFORMATION
  Report Type: 
  Country: None (occurrence: None)
  Receive Date: 20110624
  Receipt Date: 20110614
  Transmission Date: 20111010
  Serious: Yes (Other)
  Sender: FDA-Public Use
  Company Number: ES-GENENTECH-318128

PATIENT
  Sex: Female
  Weight: 69 kg

DRUGS (6)
  1. OMEPRAZOLE [Concomitant]
     Indication: PROPHYLAXIS
     Route: 048
     Dates: start: 20090514
  2. RITUXAN [Suspect]
     Dosage: UNK
     Route: 042
  3. METHOTREXATE [Concomitant]
     Indication: RHEUMATOID ARTHRITIS
     Route: 058
     Dates: start: 20090514
  4. NAPROXEN [Concomitant]
     Indication: RHEUMATOID ARTHRITIS
     Dosage: FREQUENCY: TWICE A DAY
     Route: 048
     Dates: start: 20100611
  5. RITUXAN [Suspect]
     Indication: RHEUMATOID ARTHRITIS
     Dosage: FREQUENCY NOT REPORTED
     Route: 042
     Dates: start: 20110223, end: 20110223
  6. LEUCOVORIN CALCIUM [Concomitant]
     Indication: RHEUMATOID ARTHRITIS
     Dates: start: 20090514

REACTIONS (2)
  - FACE OEDEMA [None]
  - POLYARTHRITIS [None]
